FAERS Safety Report 6611928-6 (Version None)
Quarter: 2010Q1

REPORT INFORMATION
  Report Type: 
  Country: None (occurrence: None)
  Receive Date: 20100226
  Receipt Date: 20100226
  Transmission Date: 20100710
  Serious: Yes (Hospitalization)
  Sender: FDA-Public Use
  Company Number: None

PATIENT
  Age: 70 Year
  Sex: Female
  Weight: 56.6996 kg

DRUGS (1)
  1. ALIGN DIGESTIVE CARE W/BIFANTIS 4 MG PROCTER + GAMBLE [Suspect]
     Indication: IRRITABLE BOWEL SYNDROME
     Dosage: 1 CAPSULE DAILY PO
     Route: 048
     Dates: start: 20091104, end: 20091110

REACTIONS (5)
  - DIARRHOEA [None]
  - GASTROENTERITIS VIRAL [None]
  - GASTROINTESTINAL PAIN [None]
  - IRRITABLE BOWEL SYNDROME [None]
  - VOMITING [None]
